FAERS Safety Report 13057360 (Version 1)
Quarter: 2016Q4

REPORT INFORMATION
  Report Type: Spontaneous
  Country: US (occurrence: US)
  Receive Date: 20161222
  Receipt Date: 20161222
  Transmission Date: 20170207
  Serious: No
  Sender: FDA-Public Use
  Company Number: None

PATIENT
  Age: 55 Year
  Sex: Female

DRUGS (1)
  1. ORENCIA [Suspect]
     Active Substance: ABATACEPT
     Indication: RHEUMATOID ARTHRITIS

REACTIONS (5)
  - Suicide threat [None]
  - Product availability issue [None]
  - Drug dose omission [None]
  - Condition aggravated [None]
  - General symptom [None]

NARRATIVE: CASE EVENT DATE: 20161222
